FAERS Safety Report 23675688 (Version 1)
Quarter: 2024Q1

REPORT INFORMATION
  Report Type: Spontaneous
  Country: US (occurrence: US)
  Receive Date: 20240327
  Receipt Date: 20240327
  Transmission Date: 20240409
  Serious: No
  Sender: FDA-Public Use
  Company Number: US-SA-SAC20240322000967

PATIENT
  Age: 26 Year
  Sex: Male

DRUGS (2)
  1. DUPIXENT [Suspect]
     Active Substance: DUPILUMAB
     Indication: Eosinophilic oesophagitis
     Dosage: 300MG FREQUENCY: EVERY WEEK
     Route: 058
  2. PROTOFIX [Concomitant]
     Indication: Dyspepsia
     Dosage: QD

REACTIONS (2)
  - Injection site pain [Recovering/Resolving]
  - Lack of injection site rotation [Unknown]
